FAERS Safety Report 7246457-2 (Version None)
Quarter: 2011Q1

REPORT INFORMATION
  Report Type: 
  Country: None (occurrence: None)
  Receive Date: 20110126
  Receipt Date: 20101112
  Transmission Date: 20110831
  Serious: No
  Sender: FDA-Public Use
  Company Number: US-MYLANLABS-2010S1019877

PATIENT
  Age: 74 Year
  Sex: Male

DRUGS (8)
  1. ASCORBIC ACID [Concomitant]
  2. TAMSULOSIN HCL [Suspect]
     Indication: PROSTATE INFECTION
     Route: 048
     Dates: start: 20100301, end: 20101001
  3. LISINOPRIL [Concomitant]
  4. CRANBERRY [Concomitant]
  5. AVODART [Concomitant]
  6. DIAZEPAM [Concomitant]
  7. MULTI-VITAMINS [Concomitant]
  8. HYDROCHLOROTHIAZIDE [Concomitant]

REACTIONS (4)
  - BURNING SENSATION [None]
  - CHILLS [None]
  - COLD SWEAT [None]
  - HYPERHIDROSIS [None]
